FAERS Safety Report 21936440 (Version 4)
Quarter: 2023Q1

REPORT INFORMATION
  Report Type: Spontaneous
  Country: US (occurrence: US)
  Receive Date: 20230201
  Receipt Date: 20230315
  Transmission Date: 20230417
  Serious: Yes (Other)
  Sender: FDA-Public Use
  Company Number: US-ORGANON-O2301USA002646

PATIENT
  Age: 31 Year
  Sex: Female

DRUGS (1)
  1. NEXPLANON [Suspect]
     Active Substance: ETONOGESTREL
     Dosage: 1 IMPLANT IN LEFT ARM  ONE EVERY THREE YEARS
     Route: 059
     Dates: start: 20230110, end: 20230203

REACTIONS (4)
  - Device dislocation [Recovered/Resolved]
  - Implant site pain [Unknown]
  - Device kink [Recovered/Resolved]
  - Complication associated with device [Recovered/Resolved]

NARRATIVE: CASE EVENT DATE: 20230101
